FAERS Safety Report 6761144-2 (Version None)
Quarter: 2010Q2

REPORT INFORMATION
  Report Type: 
  Country: None (occurrence: None)
  Receive Date: 20100608
  Receipt Date: 20100527
  Transmission Date: 20101027
  Serious: No
  Sender: FDA-Public Use
  Company Number: US-ELI_LILLY_AND_COMPANY-US201003006005

PATIENT
  Age: 67 Year
  Sex: Male

DRUGS (5)
  1. CIALIS [Suspect]
     Indication: ERECTILE DYSFUNCTION
     Dosage: 20 MG, UNK
     Dates: start: 20090714, end: 20091124
  2. CIALIS [Suspect]
     Dosage: 10 MG, AS NEEDED
     Dates: start: 20091125, end: 20100316
  3. CIALIS [Suspect]
     Dosage: 2.5 MG, DAILY (1/D)
     Dates: start: 20100318
  4. TESTOSTERONE [Concomitant]
     Indication: ERECTILE DYSFUNCTION
     Route: 061
  5. CHOLESTEROL- AND TRIGLYCERIDE REDUCERS [Concomitant]

REACTIONS (3)
  - HEADACHE [None]
  - INTENTIONAL DRUG MISUSE [None]
  - VISION BLURRED [None]
